FAERS Safety Report 5126538-X (Version None)
Quarter: 2006Q4

REPORT INFORMATION
  Report Type: 
  Country: None (occurrence: None)
  Receive Date: 20061010
  Receipt Date: 20060925
  Transmission Date: 20070319
  Serious: Yes (Hospitalization)
  Sender: FDA-Public Use
  Company Number: 2006PV021848

PATIENT
  Age: 78 Year
  Sex: Male
  Weight: 96.1626 kg

DRUGS (3)
  1. BYETTA [Suspect]
     Indication: DIABETES MELLITUS NON-INSULIN-DEPENDENT
     Dosage: 5 MCG BID SC
     Route: 058
     Dates: start: 20060808, end: 20060916
  2. METFORMIN HCL [Concomitant]
  3. AVANDIA [Concomitant]

REACTIONS (3)
  - CARDIOVASCULAR DISORDER [None]
  - DIZZINESS POSTURAL [None]
  - WEIGHT INCREASED [None]
